FAERS Safety Report 25590872 (Version 1)
Quarter: 2025Q3

REPORT INFORMATION
  Report Type: Report from Study
  Country: ZA (occurrence: ZA)
  Receive Date: 20250722
  Receipt Date: 20250722
  Transmission Date: 20251020
  Serious: Yes (Hospitalization)
  Sender: ALEXION PHARMACEUTICALS
  Company Number: ZA-AstraZeneca-CH-00910820A

PATIENT
  Age: 86 Year
  Sex: Female

DRUGS (8)
  1. BUDESONIDE\FORMOTEROL [Suspect]
     Active Substance: BUDESONIDE\FORMOTEROL
     Indication: Asthma
  2. Niosar co [Concomitant]
     Indication: Hypertension
  3. THEOPHYLLINE ANHYDROUS [Concomitant]
     Active Substance: THEOPHYLLINE ANHYDROUS
     Indication: Bronchospasm
  4. Pantocid [Concomitant]
     Indication: Ulcer
  5. Spiractin [Concomitant]
     Indication: Hypertension
  6. PREDNISONE [Concomitant]
     Active Substance: PREDNISONE
  7. Benylin four flu [Concomitant]
  8. Adco Dol [Concomitant]

REACTIONS (3)
  - Fall [Unknown]
  - Ophthalmic vein thrombosis [Unknown]
  - Craniofacial fracture [Unknown]
